FAERS Safety Report 8136342-6 (Version None)
Quarter: 2012Q1

REPORT INFORMATION
  Report Type: 
  Country: None (occurrence: None)
  Receive Date: 20120214
  Receipt Date: 20120213
  Transmission Date: 20120608
  Serious: No
  Sender: FDA-Public Use
  Company Number: US-BAYER-2012-014282

PATIENT
  Sex: Female

DRUGS (1)
  1. CLIMARA [Suspect]

REACTIONS (1)
  - AFFECT LABILITY [None]
